FAERS Safety Report 11876206 (Version 1)
Quarter: 2015Q4

REPORT INFORMATION
  Report Type: Spontaneous
  Country: AU (occurrence: AU)
  Receive Date: 20151229
  Receipt Date: 20151229
  Transmission Date: 20160305
  Serious: Yes (Hospitalization)
  Sender: FDA-Public Use
  Company Number: AU-BAYER-2015-495574

PATIENT
  Age: 49 Year
  Sex: Male

DRUGS (2)
  1. IOPROMIDE [Suspect]
     Active Substance: IOPROMIDE
     Indication: COMPUTERISED TOMOGRAM PELVIS
     Dosage: 130 ML, ONCE
  2. IOPROMIDE [Suspect]
     Active Substance: IOPROMIDE
     Indication: ARTERIOGRAM CORONARY
     Dosage: 100 ML, ONCE

REACTIONS (2)
  - Encephalopathy [None]
  - Groin pain [None]
